FAERS Safety Report 7565556-9 (Version None)
Quarter: 2011Q2

REPORT INFORMATION
  Report Type: 
  Country: None (occurrence: None)
  Receive Date: 20110615
  Receipt Date: 20110608
  Transmission Date: 20111010
  Serious: Yes (Hospitalization)
  Sender: FDA-Public Use
  Company Number: DOX-11-01

PATIENT
  Age: 34 Year
  Sex: Male

DRUGS (6)
  1. TEMAZEPAM [Concomitant]
  2. DOXAZOSIN MESYLATE [Suspect]
  3. AMLODIPINE [Concomitant]
  4. DIAZEPAM [Concomitant]
  5. CITALOPRAM HYDROBROMIDE [Concomitant]
  6. PERINDOPRIL ERBUMINE [Concomitant]

REACTIONS (6)
  - HEART RATE INCREASED [None]
  - HYPOXIA [None]
  - MULTIPLE DRUG OVERDOSE [None]
  - HYPOTENSION [None]
  - METABOLIC ACIDOSIS [None]
  - COMA SCALE ABNORMAL [None]
